FAERS Safety Report 4424752-X (Version None)
Quarter: 2004Q3

REPORT INFORMATION
  Report Type: 
  Country: None (occurrence: None)
  Receive Date: 20040805
  Receipt Date: 20040722
  Transmission Date: 20050211
  Serious: Yes (Life-Threatening, Hospitalization)
  Sender: FDA-Public Use
  Company Number: EM2004-0347

PATIENT
  Age: 60 Year
  Sex: 0

DRUGS (6)
  1. PROLEUKIN [Suspect]
     Indication: RENAL CELL CARCINOMA STAGE UNSPECIFIED
     Dosage: 36 MIU, QD, UNK
     Dates: start: 20040531, end: 20040623
  2. ROFERON-A [Suspect]
     Indication: RENAL CELL CARCINOMA STAGE UNSPECIFIED
     Dosage: 9 MIU, QD, UNK
     Dates: start: 20040531, end: 20040621
  3. DICODID (HYDROCODONE BITARTRATE) [Concomitant]
  4. ALLERGOSPASMIN (REPROTEROL HYDROCHLORIDE, CROMOGLICATE SODIUM) [Concomitant]
  5. VIANI (FLUTICASONE PROPIONATE, SALMETEROL XINAFORATE) [Concomitant]
  6. VENTOLINE DISKUS (SALBUTAMOL SULFATE) [Concomitant]

REACTIONS (3)
  - DEHYDRATION [None]
  - STATUS ASTHMATICUS [None]
  - VOMITING [None]
